FAERS Safety Report 11233210 (Version 1)
Quarter: 2015Q3

REPORT INFORMATION
  Report Type: Spontaneous
  Country: US (occurrence: US)
  Receive Date: 20150701
  Receipt Date: 20150701
  Transmission Date: 20151125
  Serious: No
  Sender: FDA-Public Use
  Company Number: US-009507513-1506USA014175

PATIENT
  Age: 78 Year
  Sex: Male

DRUGS (3)
  1. ORGATRAX [Suspect]
     Active Substance: HYDROXYZINE HYDROCHLORIDE
     Indication: PRURITUS
  2. DIPHENHYDRAMINE. [Suspect]
     Active Substance: DIPHENHYDRAMINE
     Indication: PRURITUS
  3. LORATADINE. [Concomitant]
     Active Substance: LORATADINE
     Indication: PRURITUS
     Route: 048

REACTIONS (1)
  - Sedation [Unknown]
